FAERS Safety Report 6059206-0 (Version None)
Quarter: 2009Q1

REPORT INFORMATION
  Report Type: 
  Country: None (occurrence: None)
  Receive Date: 20090130
  Receipt Date: 20090122
  Transmission Date: 20090719
  Serious: Yes (Hospitalization)
  Sender: FDA-Public Use
  Company Number: US-JNJFOC-20090105765

PATIENT
  Sex: Female
  Weight: 68.04 kg

DRUGS (2)
  1. REMICADE [Suspect]
     Indication: CROHN'S DISEASE
     Route: 042
  2. HUMIRA [Suspect]
     Indication: CROHN'S DISEASE
     Dosage: THERAPY START DATE WAS JAN-2008 OR FEB-2008

REACTIONS (4)
  - BLOOD POTASSIUM DECREASED [None]
  - CROHN'S DISEASE [None]
  - HAEMORRHAGE [None]
  - PLATELET COUNT DECREASED [None]
